FAERS Safety Report 6771538-7 (Version None)
Quarter: 2010Q2

REPORT INFORMATION
  Report Type: 
  Country: None (occurrence: None)
  Receive Date: 20100616
  Receipt Date: 20100610
  Transmission Date: 20101027
  Serious: Yes (Other)
  Sender: FDA-Public Use
  Company Number: BR-ROCHE-708808

PATIENT
  Sex: Female
  Weight: 76 kg

DRUGS (12)
  1. TOCILIZUMAB [Suspect]
     Indication: RHEUMATOID ARTHRITIS
     Dosage: INFUSION
     Route: 065
     Dates: start: 20091123
  2. TOCILIZUMAB [Suspect]
     Dosage: SECOND INFUSION
     Route: 065
     Dates: start: 20100106
  3. TOCILIZUMAB [Suspect]
     Dosage: THIRD INFUSION
     Route: 065
     Dates: start: 20100203
  4. TOCILIZUMAB [Suspect]
     Dosage: FOURTH INFUSION
     Route: 065
     Dates: start: 20100317
  5. TOCILIZUMAB [Suspect]
     Dosage: FIFTH INFUSION
     Route: 065
     Dates: start: 20100417, end: 20100417
  6. PREDNISONE [Concomitant]
  7. DIPYRONE [Concomitant]
  8. CHLOROQUINE PHOSPHATE [Concomitant]
  9. FOLIC ACID [Concomitant]
     Dosage: EXCEPT IN DAYS SHE USED METHOTREXATE
  10. METHOTREXATE [Concomitant]
  11. RIVOTRIL [Concomitant]
  12. FLUOXETINE HCL [Concomitant]

REACTIONS (5)
  - BACK PAIN [None]
  - BURNING SENSATION [None]
  - GRIP STRENGTH DECREASED [None]
  - HYPOAESTHESIA [None]
  - SKIN DISCOLOURATION [None]
